FAERS Safety Report 6978806-4 (Version None)
Quarter: 2010Q3

REPORT INFORMATION
  Report Type: 
  Country: None (occurrence: None)
  Receive Date: 20100913
  Receipt Date: 20100903
  Transmission Date: 20110219
  Serious: Yes (Other)
  Sender: FDA-Public Use
  Company Number: BR-SANOFI-AVENTIS-2010SA053171

PATIENT
  Age: 33 Year
  Sex: Male
  Weight: 55 kg

DRUGS (3)
  1. LANTUS [Suspect]
     Route: 058
     Dates: start: 20070101
  2. OPTIPEN [Suspect]
     Dates: start: 20070101
  3. HUMALOG [Concomitant]

REACTIONS (1)
  - RENAL FAILURE [None]
